FAERS Safety Report 18080312 (Version 9)
Quarter: 2025Q2

REPORT INFORMATION
  Report Type: Report from Study
  Country: US (occurrence: US)
  Receive Date: 20200728
  Receipt Date: 20250619
  Transmission Date: 20250717
  Serious: Yes (Other)
  Sender: TAKEDA
  Company Number: US-SHIRE-US202024142

PATIENT
  Age: 64 Year
  Sex: Male
  Weight: 97 kg

DRUGS (49)
  1. HUMAN IMMUNOGLOBULIN G [Suspect]
     Active Substance: HUMAN IMMUNOGLOBULIN G
     Indication: Immunodeficiency common variable
     Dosage: 30 GRAM, Q2WEEKS
     Dates: start: 20200707
  2. HUMAN IMMUNOGLOBULIN G [Suspect]
     Active Substance: HUMAN IMMUNOGLOBULIN G
     Indication: Combined immunodeficiency
     Dosage: 20 GRAM, Q2WEEKS
  3. HUMAN IMMUNOGLOBULIN G [Suspect]
     Active Substance: HUMAN IMMUNOGLOBULIN G
     Dosage: 30 GRAM, Q2WEEKS
  4. HUMAN IMMUNOGLOBULIN G [Suspect]
     Active Substance: HUMAN IMMUNOGLOBULIN G
     Dosage: 24 GRAM, Q2WEEKS
  5. HUMAN IMMUNOGLOBULIN G [Suspect]
     Active Substance: HUMAN IMMUNOGLOBULIN G
     Dosage: 30 GRAM, Q2WEEKS
  6. ACETAMINOPHEN [Concomitant]
     Active Substance: ACETAMINOPHEN
  7. DIPHENHYDRAMINE [Concomitant]
     Active Substance: DIPHENHYDRAMINE
  8. LIDOCAINE [Concomitant]
     Active Substance: LIDOCAINE
  9. ONDANSETRON [Concomitant]
     Active Substance: ONDANSETRON
  10. EPINEPHRINE [Concomitant]
     Active Substance: EPINEPHRINE
  11. HYDROMORPHONE HCL [Concomitant]
     Active Substance: HYDROMORPHONE HYDROCHLORIDE
  12. IPRATROPIUM BROMIDE [Concomitant]
     Active Substance: IPRATROPIUM BROMIDE
  13. AZELASTINE HYDROCHLORIDE [Concomitant]
     Active Substance: AZELASTINE HYDROCHLORIDE
  14. TIZANIDINE [Concomitant]
     Active Substance: TIZANIDINE
  15. CELECOXIB [Concomitant]
     Active Substance: CELECOXIB
  16. MYRBETRIQ [Concomitant]
     Active Substance: MIRABEGRON
  17. FLUOXETINE [Concomitant]
     Active Substance: FLUOXETINE HYDROCHLORIDE
  18. TYLENOL [Concomitant]
     Active Substance: ACETAMINOPHEN
  19. PANTOPRAZOLE [Concomitant]
     Active Substance: PANTOPRAZOLE
  20. PRIMIDONE [Concomitant]
     Active Substance: PRIMIDONE
  21. ANASTROZOLE [Concomitant]
     Active Substance: ANASTROZOLE
  22. ALTACE [Concomitant]
     Active Substance: RAMIPRIL
  23. HYDROXYZINE [Concomitant]
     Active Substance: HYDROXYZINE HYDROCHLORIDE
  24. METOPROLOL TARTRATE [Concomitant]
     Active Substance: METOPROLOL TARTRATE
  25. NORVASC [Concomitant]
     Active Substance: AMLODIPINE BESYLATE
  26. FENOFIBRATE [Concomitant]
     Active Substance: FENOFIBRATE
  27. BACTRIM [Concomitant]
     Active Substance: SULFAMETHOXAZOLE\TRIMETHOPRIM
  28. SODIUM CHLORIDE [Concomitant]
     Active Substance: SODIUM CHLORIDE
  29. PHENTERMINE HYDROCHLORIDE [Concomitant]
     Active Substance: PHENTERMINE HYDROCHLORIDE
  30. HYDROXYZINE HYDROCHLORIDE [Concomitant]
     Active Substance: HYDROXYZINE HYDROCHLORIDE
  31. BUDESONIDE\FORMOTEROL FUMARATE [Concomitant]
     Active Substance: BUDESONIDE\FORMOTEROL FUMARATE
  32. TIZANIDINE HYDROCHLORIDE [Concomitant]
     Active Substance: TIZANIDINE HYDROCHLORIDE
  33. AZELASTINE [Concomitant]
     Active Substance: AZELASTINE
  34. HYDROMORPHONE [Concomitant]
     Active Substance: HYDROMORPHONE
  35. LEVALBUTEROL HYDROCHLORIDE [Concomitant]
     Active Substance: LEVALBUTEROL HYDROCHLORIDE
  36. LEVALBUTEROL TARTRATE [Concomitant]
     Active Substance: LEVALBUTEROL TARTRATE
  37. PANTOPRAZOLE SODIUM [Concomitant]
     Active Substance: PANTOPRAZOLE SODIUM
  38. MELATONIN [Concomitant]
     Active Substance: MELATONIN
  39. TESTOSTERONE CYPIONATE [Concomitant]
     Active Substance: TESTOSTERONE CYPIONATE
  40. ROPINIROLE HYDROCHLORIDE [Concomitant]
     Active Substance: ROPINIROLE HYDROCHLORIDE
  41. GABAPENTIN [Concomitant]
     Active Substance: GABAPENTIN
  42. TADALAFIL [Concomitant]
     Active Substance: TADALAFIL
  43. SILDENAFIL CITRATE [Concomitant]
     Active Substance: SILDENAFIL CITRATE
  44. ASPIRIN [Concomitant]
     Active Substance: ASPIRIN
  45. DIPHENHYDRAMINE HYDROCHLORIDE [Concomitant]
     Active Substance: DIPHENHYDRAMINE HYDROCHLORIDE
  46. IBUPROFEN [Concomitant]
     Active Substance: IBUPROFEN
  47. AMLODIPINE BESYLATE [Concomitant]
     Active Substance: AMLODIPINE BESYLATE
  48. RAMIPRIL [Concomitant]
     Active Substance: RAMIPRIL
  49. ZYRTEC [Concomitant]
     Active Substance: CETIRIZINE HYDROCHLORIDE

REACTIONS (10)
  - Pneumonia [Unknown]
  - Restless legs syndrome [Unknown]
  - Nasopharyngitis [Unknown]
  - COVID-19 [Unknown]
  - Product dose omission issue [Unknown]
  - Weight decreased [Recovered/Resolved]
  - Oropharyngeal pain [Unknown]
  - Cough [Unknown]
  - Headache [Unknown]
  - Nausea [Unknown]

NARRATIVE: CASE EVENT DATE: 20211121
